FAERS Safety Report 8574041-7 (Version None)
Quarter: 2012Q3

REPORT INFORMATION
  Report Type: 
  Country: None (occurrence: None)
  Receive Date: 20120806
  Receipt Date: 20120730
  Transmission Date: 20120928
  Serious: No
  Sender: FDA-Public Use
  Company Number: US-B.I. PHARMACEUTICALS,INC./RIDGEFIELD-2012-BP-17181BP

PATIENT
  Sex: Female
  Weight: 57 kg

DRUGS (1)
  1. MICARDIS [Suspect]
     Indication: CARDIAC DISORDER
     Dosage: 40 MG
     Route: 048
     Dates: start: 20111201

REACTIONS (15)
  - PAIN IN JAW [None]
  - MUSCULOSKELETAL CHEST PAIN [None]
  - OESOPHAGEAL PAIN [None]
  - DYSGEUSIA [None]
  - RADICULOPATHY [None]
  - INCREASED UPPER AIRWAY SECRETION [None]
  - CHEST PAIN [None]
  - OROPHARYNGEAL PAIN [None]
  - THROAT IRRITATION [None]
  - SENSORY DISTURBANCE [None]
  - OROPHARYNGEAL DISCOMFORT [None]
  - NEURALGIA [None]
  - ABDOMINAL PAIN UPPER [None]
  - ABDOMINAL DISCOMFORT [None]
  - DENTAL DISCOMFORT [None]
